FAERS Safety Report 24931895 (Version 1)
Quarter: 2025Q1

REPORT INFORMATION
  Report Type: Report from Study
  Country: US (occurrence: US)
  Receive Date: 20250205
  Receipt Date: 20250205
  Transmission Date: 20250408
  Serious: No
  Sender: EXELIXIS
  Company Number: US-EXELIXIS-CABO-24079114

PATIENT
  Sex: Male

DRUGS (2)
  1. CABOMETYX [Suspect]
     Active Substance: CABOZANTINIB S-MALATE
     Indication: Renal cancer
     Dosage: 60 MG, QD
     Route: 048
  2. CABOMETYX [Suspect]
     Active Substance: CABOZANTINIB S-MALATE
     Dosage: 40 MG, QD
     Route: 048

REACTIONS (13)
  - Anxiety [Unknown]
  - Hyperhidrosis [Unknown]
  - Jaw clicking [Unknown]
  - Dizziness [Unknown]
  - Fatigue [Unknown]
  - Stomatitis [Recovering/Resolving]
  - Decreased appetite [Unknown]
  - Weight decreased [Unknown]
  - Diarrhoea [Unknown]
  - Taste disorder [Unknown]
  - Dyspnoea [Unknown]
  - Cough [Unknown]
  - Cardiac disorder [Unknown]
